FAERS Safety Report 7044947-9 (Version None)
Quarter: 2010Q4

REPORT INFORMATION
  Report Type: 
  Country: None (occurrence: None)
  Receive Date: 20101014
  Receipt Date: 20101006
  Transmission Date: 20110411
  Serious: Yes (Other)
  Sender: FDA-Public Use
  Company Number: PHHY2010BR67261

PATIENT
  Sex: Male

DRUGS (7)
  1. APRESOLINE [Suspect]
  2. RASILEZ [Suspect]
  3. ATENOLOL [Concomitant]
  4. ZANIDIP [Concomitant]
  5. SINVASTATINA [Concomitant]
  6. ASPIRIN [Concomitant]
  7. SPIRONOLACTONE [Concomitant]

REACTIONS (3)
  - BLOOD PRESSURE INCREASED [None]
  - DIZZINESS [None]
  - MALAISE [None]
